FAERS Safety Report 6862136-5 (Version None)
Quarter: 2010Q3

REPORT INFORMATION
  Report Type: 
  Country: None (occurrence: None)
  Receive Date: 20100719
  Receipt Date: 20100706
  Transmission Date: 20110219
  Serious: Yes (Hospitalization)
  Sender: FDA-Public Use
  Company Number: 7010216

PATIENT
  Age: 50 Year
  Sex: Female

DRUGS (2)
  1. REBIF [Suspect]
     Indication: MULTIPLE SCLEROSIS
     Dosage: 44 MCG, 3 IN 1 WK, SUBCUTANEOUS
     Route: 058
     Dates: start: 20100101
  2. UNSPECIFIED MEDICATION (ALL OTHER THERAPEUTIC PRODUCTS) [Concomitant]

REACTIONS (7)
  - CLOSTRIDIAL INFECTION [None]
  - DIARRHOEA [None]
  - EXPOSURE TO CONTAMINATED DEVICE [None]
  - MULTIPLE SCLEROSIS [None]
  - SEPSIS [None]
  - URINARY TRACT INFECTION [None]
  - VOLVULUS [None]
